FAERS Safety Report 8844802 (Version 1)
Quarter: 2012Q4

REPORT INFORMATION
  Report Type: 
  Country: US (occurrence: US)
  Receive Date: 20121017
  Receipt Date: 20121017
  Transmission Date: 20130627
  Serious: Yes (Other)
  Sender: FDA-Public Use
  Company Number: US-SANOFI-AVENTIS-2012SA075258

PATIENT
  Age: 81 Year
  Sex: Male
  Weight: 86.2 kg

DRUGS (6)
  1. ELIGARD [Suspect]
     Indication: PROSTATE CANCER
     Route: 030
     Dates: start: 20110202
  2. LEUPRORELIN ACETATE [Suspect]
     Indication: PROSTATE CANCER
     Route: 030
     Dates: start: 20120527
  3. TRIPTORELIN EMBONATE [Suspect]
     Indication: PROSTATE CANCER
     Route: 030
     Dates: start: 20100808
  4. WARFARIN [Concomitant]
     Dates: start: 2007
  5. MOBIC [Concomitant]
     Dates: start: 2000
  6. DAILY VITAMINS [Concomitant]

REACTIONS (2)
  - Soft tissue mass [Recovering/Resolving]
  - Incorrect route of drug administration [Unknown]
